FAERS Safety Report 6910484-2 (Version None)
Quarter: 2010Q3

REPORT INFORMATION
  Report Type: 
  Country: None (occurrence: None)
  Receive Date: 20100806
  Receipt Date: 20100726
  Transmission Date: 20110219
  Serious: Yes (Hospitalization, Other)
  Sender: FDA-Public Use
  Company Number: JP-SANOFI-AVENTIS-2010SA044084

PATIENT
  Age: 66 Year
  Sex: Male

DRUGS (15)
  1. ELPLAT [Suspect]
     Indication: COLON CANCER
     Route: 042
     Dates: start: 20070702, end: 20070702
  2. ELPLAT [Suspect]
     Route: 042
     Dates: start: 20100415, end: 20100415
  3. XELODA [Suspect]
     Indication: COLON CANCER
     Dates: start: 20100115, end: 20100415
  4. AVASTIN [Suspect]
     Route: 042
     Dates: start: 20100115, end: 20100115
  5. AVASTIN [Suspect]
     Route: 042
     Dates: start: 20100226, end: 20100226
  6. AVASTIN [Suspect]
     Route: 042
     Dates: start: 20100415, end: 20100415
  7. URSO 250 [Concomitant]
  8. MYSLEE [Concomitant]
  9. PROTECADIN [Concomitant]
  10. PYDOXAL [Concomitant]
     Dates: start: 20100115, end: 20100427
  11. MUCOSOLVAN [Concomitant]
  12. CLARITIN [Concomitant]
  13. MICARDIS [Concomitant]
     Dates: start: 20090108, end: 20100427
  14. AMLODIPINE BESYLATE [Concomitant]
     Dates: start: 20090108, end: 20100427
  15. FLUITRAN [Concomitant]
     Dates: start: 20090108, end: 20100427

REACTIONS (10)
  - ASCITES [None]
  - BLOOD ALBUMIN DECREASED [None]
  - BLOOD URINE PRESENT [None]
  - ECZEMA [None]
  - EPISTAXIS [None]
  - OEDEMA [None]
  - PROTEIN URINE [None]
  - PURPURA [None]
  - RASH [None]
  - RENAL FAILURE ACUTE [None]
